FAERS Safety Report 18598845 (Version 1)
Quarter: 2020Q4

REPORT INFORMATION
  Report Type: Spontaneous
  Country: US (occurrence: US)
  Receive Date: 20201210
  Receipt Date: 20201210
  Transmission Date: 20210114
  Serious: No
  Sender: FDA-Public Use
  Company Number: US-GLAXOSMITHKLINE-US2020AMR237430

PATIENT
  Age: 68 Year
  Sex: Female

DRUGS (1)
  1. ALBUTEROL SULFATE. [Suspect]
     Active Substance: ALBUTEROL SULFATE
     Indication: DYSPNOEA
     Dosage: 2 PUFF(S), EVERY 4-6 HOURS

REACTIONS (3)
  - Exposure via skin contact [Unknown]
  - Wrong technique in device usage process [Unknown]
  - Product dose omission issue [Unknown]
